FAERS Safety Report 15124915 (Version 1)
Quarter: 2018Q4

REPORT INFORMATION
  Report Type: Spontaneous
  Country: US (occurrence: US)
  Receive Date: 20180710
  Receipt Date: 20180710
  Transmission Date: 20190204
  Serious: No
  Sender: FDA-Public Use
  Company Number: US-ACCORD-068933

PATIENT
  Age: 58 Year
  Sex: Male
  Weight: 104.78 kg

DRUGS (13)
  1. FUROSEMIDE. [Concomitant]
     Active Substance: FUROSEMIDE
  2. DIGOXIN. [Concomitant]
     Active Substance: DIGOXIN
  3. CALCITRIOL. [Concomitant]
     Active Substance: CALCITRIOL
  4. GLIPIZIDE. [Concomitant]
     Active Substance: GLIPIZIDE
     Dosage: 5MG 2 IN THE MORNING, 1 AT LUNCH, 1 AT SUPPER
  5. METOPROLOL. [Concomitant]
     Active Substance: METOPROLOL
     Dosage: ALSO 25 MG ONCE A DAY
  6. GLYCERYL TRINITRATE [Concomitant]
     Active Substance: NITROGLYCERIN
  7. ALLOPURINOL. [Concomitant]
     Active Substance: ALLOPURINOL
  8. CHLORHEXIDINE [Concomitant]
     Active Substance: CHLORHEXIDINE
  9. COLECALCIFEROL [Concomitant]
     Active Substance: CHOLECALCIFEROL
     Dosage: 1000 UNITS, 500 UNITS / 2 DAILY
  10. SODIUM FLUORIDE. [Concomitant]
     Active Substance: SODIUM FLUORIDE
     Dosage: GEL FOR TEETH
  11. LIDOCAINE. [Concomitant]
     Active Substance: LIDOCAINE
     Dosage: LEGS THREE TIMES A DAY
  12. SPIRONOLACTONE ACCORD [Suspect]
     Active Substance: SPIRONOLACTONE
     Indication: BLOOD PRESSURE MEASUREMENT
     Route: 048
     Dates: start: 201804, end: 20180608
  13. WARFARIN AMNEAL [Interacting]
     Active Substance: WARFARIN SODIUM
     Indication: PRODUCT USED FOR UNKNOWN INDICATION
     Dosage: STRENGTH: 2.5 MG?MAH: AMNEAL

REACTIONS (5)
  - Product taste abnormal [Unknown]
  - Product odour abnormal [Unknown]
  - International normalised ratio abnormal [Unknown]
  - Diarrhoea [Not Recovered/Not Resolved]
  - Drug interaction [Unknown]
